FAERS Safety Report 8450212-5 (Version None)
Quarter: 2012Q2

REPORT INFORMATION
  Report Type: 
  Country: None (occurrence: None)
  Receive Date: 20120613
  Receipt Date: 20120607
  Transmission Date: 20120825
  Serious: Yes (Hospitalization)
  Sender: FDA-Public Use
  Company Number: 217765

PATIENT
  Age: 74 Year
  Sex: Male

DRUGS (1)
  1. CALCIPOTRIENE AND BETAMETHASONE DIPROPIONATE [Suspect]
     Indication: PSORIASIS
     Dosage: TOPICAL
     Route: 061
     Dates: start: 20080601

REACTIONS (3)
  - DRUG INEFFECTIVE [None]
  - JOINT DISLOCATION [None]
  - FALL [None]
